FAERS Safety Report 24785581 (Version 1)
Quarter: 2024Q4

REPORT INFORMATION
  Report Type: Spontaneous
  Country: US (occurrence: None)
  Receive Date: 20241227
  Receipt Date: 20241227
  Transmission Date: 20250115
  Serious: Yes (Other)
  Sender: Public
  Company Number: None

PATIENT
  Sex: 0

DRUGS (1)
  1. SYSTANE (HYPROMELLOSE 2910 (4000 MPA.S)) [Suspect]
     Active Substance: HYPROMELLOSE 2910 (4000 MPA.S)
     Indication: Macular degeneration

REACTIONS (3)
  - Vision blurred [None]
  - Fear [None]
  - Eye irritation [None]
